FAERS Safety Report 10914412 (Version 1)
Quarter: 2015Q1

REPORT INFORMATION
  Report Type: Spontaneous
  Country: US (occurrence: US)
  Receive Date: 20150313
  Receipt Date: 20150313
  Transmission Date: 20150721
  Serious: No
  Sender: FDA-Public Use
  Company Number: US-GLAXOSMITHKLINE-US2015024930

PATIENT
  Sex: Male

DRUGS (4)
  1. VALSARTAN. [Concomitant]
     Active Substance: VALSARTAN
  2. DETROL [Suspect]
     Active Substance: TOLTERODINE TARTRATE
     Indication: BENIGN PROSTATIC HYPERPLASIA
     Dosage: 2 MG, BID
     Route: 048
  3. AVODART [Suspect]
     Active Substance: DUTASTERIDE
     Indication: BENIGN PROSTATIC HYPERPLASIA
     Dosage: 0.50 MG, QD
     Route: 048
     Dates: start: 20140323
  4. CARVEDILOL. [Concomitant]
     Active Substance: CARVEDILOL

REACTIONS (5)
  - Drug ineffective [Not Recovered/Not Resolved]
  - Groin pain [Not Recovered/Not Resolved]
  - Urinary incontinence [Unknown]
  - Pain of skin [Not Recovered/Not Resolved]
  - Middle insomnia [Not Recovered/Not Resolved]
